FAERS Safety Report 5176544-4 (Version None)
Quarter: 2006Q4

REPORT INFORMATION
  Report Type: 
  Country: None (occurrence: None)
  Receive Date: 20061215
  Receipt Date: 20061205
  Transmission Date: 20070319
  Serious: Yes (Hospitalization)
  Sender: FDA-Public Use
  Company Number: BR-JNJFOC-20061202294

PATIENT
  Age: 5 Month
  Sex: Male
  Weight: 7 kg

DRUGS (3)
  1. TYLENOL [Suspect]
     Indication: PAIN
     Route: 048
  2. TYLENOL [Suspect]
     Indication: PYREXIA
     Route: 048
  3. VACCINATION [Concomitant]

REACTIONS (2)
  - INCORRECT DOSE ADMINISTERED [None]
  - VOMITING [None]
